FAERS Safety Report 17799166 (Version 1)
Quarter: 2020Q2

REPORT INFORMATION
  Report Type: Spontaneous
  Country: FI (occurrence: FI)
  Receive Date: 20200518
  Receipt Date: 20200518
  Transmission Date: 20200714
  Serious: Yes (Other)
  Sender: FDA-Public Use
  Company Number: NVSC2020FI135122

PATIENT
  Age: 61 Year
  Sex: Male

DRUGS (5)
  1. DEXAMETHASONE. [Suspect]
     Active Substance: DEXAMETHASONE
     Indication: AMYLOIDOSIS
     Dosage: 1 UNK, Q3W (EVERY 3 WEEKS AND ONE PAUSE WEEK)
     Route: 065
     Dates: start: 201701
  2. VELCADE [Suspect]
     Active Substance: BORTEZOMIB
     Dosage: 1 UNK, Q3W (EVERY 3 WEEKS AND 1 PAUSE WEEK)
     Route: 042
     Dates: start: 201701
  3. VELCADE [Suspect]
     Active Substance: BORTEZOMIB
     Indication: AMYLOIDOSIS
     Dosage: 1 UNK, Q4W (EVERY 4 WEEKS AND 1 PAUSE WEEK)
     Route: 042
     Dates: start: 201304
  4. REVLIMID [Suspect]
     Active Substance: LENALIDOMIDE
     Dosage: 10 MG, QOD
     Route: 065
     Dates: start: 201701
  5. REVLIMID [Suspect]
     Active Substance: LENALIDOMIDE
     Indication: AMYLOIDOSIS
     Dosage: UNK UNK, Q3W (EVERY 3 WEEKS AND ONE PAUSE WEEK)
     Route: 065
     Dates: start: 201701

REACTIONS (3)
  - Off label use [Unknown]
  - Product use in unapproved indication [Unknown]
  - Respiratory tract infection [Recovered/Resolved]
